FAERS Safety Report 21602427 (Version 1)
Quarter: 2022Q4

REPORT INFORMATION
  Report Type: Spontaneous
  Country: US (occurrence: None)
  Receive Date: 20221116
  Receipt Date: 20221116
  Transmission Date: 20230112
  Serious: No
  Sender: FDA-Public Use
  Company Number: US-Hikma Pharmaceuticals USA Inc.-US-H14001-22-00795

PATIENT
  Sex: Female

DRUGS (3)
  1. DIGOXIN [Suspect]
     Active Substance: DIGOXIN
     Indication: Cardiac fibrillation
     Route: 048
     Dates: start: 20220214
  2. VITAMIN D [Concomitant]
     Active Substance: VITAMIN D NOS
     Indication: Product used for unknown indication
     Dosage: UNKNOWN
     Route: 065
  3. MINERALS\VITAMINS [Concomitant]
     Active Substance: MINERALS\VITAMINS
     Indication: Product used for unknown indication
     Dosage: UNKNOWN
     Route: 065

REACTIONS (3)
  - Alopecia [Unknown]
  - Balance disorder [Unknown]
  - Condition aggravated [Unknown]
